FAERS Safety Report 7727367-0 (Version None)
Quarter: 2011Q3

REPORT INFORMATION
  Report Type: 
  Country: None (occurrence: None)
  Receive Date: 20110902
  Receipt Date: 20110831
  Transmission Date: 20111222
  Serious: Yes (Life-Threatening, Hospitalization, Other)
  Sender: FDA-Public Use
  Company Number: PHHY2011GB77537

PATIENT
  Age: 59 Year
  Sex: Female
  Weight: 58.5 kg

DRUGS (7)
  1. SYMBICORT [Concomitant]
     Dosage: 2 DF, UNK
     Dates: start: 20110701
  2. CLOTRIMAZOLE [Concomitant]
     Indication: FUNGAL INFECTION
     Route: 061
     Dates: start: 20110601
  3. RANITIDINE [Suspect]
     Indication: DYSPEPSIA
     Dosage: 300 MG, DAILY
     Route: 048
     Dates: start: 20110201
  4. NICOTINE [Concomitant]
     Dosage: 15 MG, UNK
     Route: 061
     Dates: start: 20110701
  5. CLOZAPINE [Suspect]
     Route: 048
     Dates: start: 20110610, end: 20110627
  6. CLOZAPINE [Suspect]
     Route: 048
     Dates: start: 20110707, end: 20110809
  7. ALBUTEROL [Concomitant]
     Dosage: 2 DF, UNK
     Dates: start: 20110701

REACTIONS (6)
  - LEUKOPENIA [None]
  - BLOOD POTASSIUM DECREASED [None]
  - LOWER RESPIRATORY TRACT INFECTION [None]
  - PNEUMONIA [None]
  - AGRANULOCYTOSIS [None]
  - NEUTROPENIC SEPSIS [None]
